FAERS Safety Report 6007911-4 (Version None)
Quarter: 2008Q4

REPORT INFORMATION
  Report Type: 
  Country: None (occurrence: None)
  Receive Date: 20081217
  Receipt Date: 20080610
  Transmission Date: 20090506
  Serious: No
  Sender: FDA-Public Use
  Company Number: US-ASTRAZENECA-2008UW11615

PATIENT
  Age: 957 Month
  Sex: Female
  Weight: 72.6 kg

DRUGS (5)
  1. CRESTOR [Suspect]
     Indication: BLOOD CHOLESTEROL INCREASED
     Route: 048
  2. TIAZAC [Concomitant]
  3. ACIPHEX [Concomitant]
  4. HYDROCHLOROTHIAZIDE [Concomitant]
  5. VITAMINS [Concomitant]

REACTIONS (1)
  - PAIN IN EXTREMITY [None]
